FAERS Safety Report 14079040 (Version 2)
Quarter: 2018Q4

REPORT INFORMATION
  Report Type: Spontaneous
  Country: DK (occurrence: DK)
  Receive Date: 20171012
  Receipt Date: 20181030
  Transmission Date: 20190204
  Serious: Yes (Disabling)
  Sender: FDA-Public Use
  Company Number: DK-GUERBET-DK-20170008

PATIENT
  Age: 75 Year
  Sex: Male

DRUGS (1)
  1. DOTAREM [Suspect]
     Active Substance: GADOTERATE MEGLUMINE
     Indication: NUCLEAR MAGNETIC RESONANCE IMAGING
     Route: 042
     Dates: start: 20160615, end: 20160615

REACTIONS (9)
  - Hypoaesthesia [Unknown]
  - Skin exfoliation [Recovering/Resolving]
  - Eczema [Unknown]
  - Skin wound [Unknown]
  - Pruritus [Unknown]
  - Erythema [Recovering/Resolving]
  - Dermatitis allergic [Recovering/Resolving]
  - Skin tightness [Recovering/Resolving]
  - Onychoclasis [Unknown]

NARRATIVE: CASE EVENT DATE: 20160616
